FAERS Safety Report 8884955 (Version 1)
Quarter: 2012Q4

REPORT INFORMATION
  Report Type: 
  Country: CN (occurrence: CN)
  Receive Date: 20121102
  Receipt Date: 20121102
  Transmission Date: 20130627
  Serious: Yes (Other)
  Sender: FDA-Public Use
  Company Number: CN-JNJFOC-20121015828

PATIENT
  Age: 25 Year
  Sex: Male

DRUGS (3)
  1. REMICADE [Suspect]
     Indication: CROHN^S DISEASE
     Route: 042
     Dates: start: 20120807, end: 20120807
  2. REMICADE [Suspect]
     Indication: CROHN^S DISEASE
     Dosage: Strength: 100 mg
     Route: 042
     Dates: start: 20120315
  3. REMICADE [Suspect]
     Indication: CROHN^S DISEASE
     Route: 042
     Dates: start: 201204

REACTIONS (1)
  - Tuberculosis [Not Recovered/Not Resolved]
